FAERS Safety Report 18523679 (Version 2)
Quarter: 2020Q4

REPORT INFORMATION
  Report Type: Spontaneous
  Country: US (occurrence: US)
  Receive Date: 20201119
  Receipt Date: 20201222
  Transmission Date: 20210114
  Serious: No
  Sender: FDA-Public Use
  Company Number: US-PFIZER INC-2020449529

PATIENT
  Age: 15 Year
  Sex: Male
  Weight: 32.21 kg

DRUGS (2)
  1. GENOTROPIN [Suspect]
     Active Substance: SOMATROPIN
     Indication: RENAL FAILURE
  2. GENOTROPIN [Suspect]
     Active Substance: SOMATROPIN
     Indication: GROWTH FAILURE
     Dosage: UNK (REPORTED AS 1.4, UNSPECIFIED UNIT), 1X/DAY (NIGHTLY)

REACTIONS (3)
  - Drug dose omission by device [Unknown]
  - Device use error [Unknown]
  - Device information output issue [Unknown]

NARRATIVE: CASE EVENT DATE: 20201110
